FAERS Safety Report 10591737 (Version 1)
Quarter: 2014Q4

REPORT INFORMATION
  Report Type: Spontaneous
  Country: US (occurrence: US)
  Receive Date: 20141118
  Receipt Date: 20141118
  Transmission Date: 20150529
  Serious: No
  Sender: FDA-Public Use
  Company Number: US-GLAXOSMITHKLINE-US2014GSK021914

PATIENT
  Sex: Female
  Weight: 64 kg

DRUGS (2)
  1. EPHEDRINE [Concomitant]
     Active Substance: EPHEDRINE
  2. IMITREX [Suspect]
     Active Substance: SUMATRIPTAN\SUMATRIPTAN SUCCINATE
     Indication: MIGRAINE

REACTIONS (2)
  - Abdominal discomfort [Unknown]
  - Nausea [Unknown]
